FAERS Safety Report 17550454 (Version 1)
Quarter: 2020Q1

REPORT INFORMATION
  Report Type: Spontaneous
  Country: IT (occurrence: IT)
  Receive Date: 20200317
  Receipt Date: 20200317
  Transmission Date: 20200409
  Serious: Yes (Other)
  Sender: FDA-Public Use
  Company Number: IT-PFIZER INC-2020113807

PATIENT
  Age: 47 Year
  Sex: Male
  Weight: 68 kg

DRUGS (4)
  1. CLOZAPIN HEXAL [Suspect]
     Active Substance: CLOZAPINE
     Indication: SCHIZOPHRENIA
     Dates: start: 20180815
  2. TAVOR (LORAZEPAM) [Suspect]
     Active Substance: LORAZEPAM
     Dosage: 3 DF, 1X/DAY
     Dates: start: 20180805
  3. INVEGA [Suspect]
     Active Substance: PALIPERIDONE
     Dates: start: 20180805
  4. ANSIOLIN [Suspect]
     Active Substance: DIAZEPAM
     Dates: start: 20180805

REACTIONS (8)
  - Dyskinesia [Unknown]
  - Somnolence [Unknown]
  - Muscle rigidity [Unknown]
  - Dizziness [Unknown]
  - Erectile dysfunction [Unknown]
  - Micturition disorder [Unknown]
  - Hyperprolactinaemia [Unknown]
  - Bradykinesia [Unknown]

NARRATIVE: CASE EVENT DATE: 20181015
